FAERS Safety Report 22395999 (Version 1)
Quarter: 2023Q2

REPORT INFORMATION
  Report Type: Spontaneous
  Country: US (occurrence: US)
  Receive Date: 20230601
  Receipt Date: 20230601
  Transmission Date: 20230722
  Serious: No
  Sender: FDA-Public Use
  Company Number: US-APIL-2312397US

PATIENT
  Age: 29 Year
  Sex: Female

DRUGS (2)
  1. QULIPTA [Suspect]
     Active Substance: ATOGEPANT
     Indication: Migraine
     Dosage: 60 MG, QD
     Route: 048
     Dates: start: 20230306
  2. TOPAMAX [Concomitant]
     Active Substance: TOPIRAMATE
     Indication: Migraine
     Dosage: 50 MG, BID
     Dates: start: 20190420

REACTIONS (2)
  - Therapy interrupted [Unknown]
  - Headache [Not Recovered/Not Resolved]

NARRATIVE: CASE EVENT DATE: 20230404
